FAERS Safety Report 11209590 (Version 1)
Quarter: 2015Q2

REPORT INFORMATION
  Report Type: Spontaneous
  Country: US (occurrence: US)
  Receive Date: 20150622
  Receipt Date: 20150622
  Transmission Date: 20150821
  Serious: No
  Sender: FDA-Public Use
  Company Number: US-TAKEDA-2015TUS007997

PATIENT
  Sex: Male

DRUGS (2)
  1. PREVACID SOLUTAB [Suspect]
     Active Substance: LANSOPRAZOLE
     Dosage: 15 MG, TWO TABLETS DAILY
     Route: 048
  2. PREVACID SOLUTAB [Suspect]
     Active Substance: LANSOPRAZOLE
     Indication: PRODUCT USE ISSUE
     Dosage: 30 MG, ONCE DAILY
     Route: 048

REACTIONS (1)
  - Drug ineffective [Unknown]
